FAERS Safety Report 6340140-3 (Version None)
Quarter: 2009Q3

REPORT INFORMATION
  Report Type: 
  Country: None (occurrence: None)
  Receive Date: 20090903
  Receipt Date: 20090827
  Transmission Date: 20100115
  Serious: Yes (Hospitalization, Other)
  Sender: FDA-Public Use
  Company Number: JP-MERCK-0712USA08608

PATIENT
  Age: 39 Year
  Sex: Female

DRUGS (6)
  1. SINGULAIR [Suspect]
     Indication: ASTHMA
     Route: 048
     Dates: start: 20070101, end: 20070101
  2. METHYLPREDNISOLONE [Suspect]
     Route: 065
  3. PREDNISONE [Suspect]
     Route: 065
  4. UNIPHYL [Suspect]
     Indication: ASTHMA
     Route: 048
     Dates: start: 20070101, end: 20070101
  5. THEOLONG [Concomitant]
     Route: 048
     Dates: start: 20020101
  6. FLUTICASONE PROPIONATE [Concomitant]
     Dates: start: 20020101

REACTIONS (4)
  - BLOOD CREATINE PHOSPHOKINASE INCREASED [None]
  - MYALGIA [None]
  - MYOPATHY [None]
  - POLYMYOSITIS [None]
